FAERS Safety Report 7466071-3 (Version None)
Quarter: 2011Q2

REPORT INFORMATION
  Report Type: 
  Country: None (occurrence: None)
  Receive Date: 20110509
  Receipt Date: 20100614
  Transmission Date: 20111010
  Serious: No
  Sender: FDA-Public Use
  Company Number: US-ALEXION-A201000688

PATIENT
  Sex: Male

DRUGS (5)
  1. VITAMINS NOS [Concomitant]
     Dosage: UNK
  2. FOLIC ACID [Concomitant]
     Dosage: UNK
  3. PREDNISONE [Concomitant]
     Dosage: ALTERNATING 2.5 OR 5.0 MG DOSE
     Route: 048
  4. SOLIRIS [Suspect]
     Indication: PAROXYSMAL NOCTURNAL HAEMOGLOBINURIA
     Dosage: 900 MG, Q2W
     Dates: start: 20090701
  5. CYCLOSPORINE [Concomitant]
     Dosage: 300 MG, BID
     Route: 048

REACTIONS (1)
  - RHINORRHOEA [None]
